FAERS Safety Report 6804894-1 (Version None)
Quarter: 2010Q2

REPORT INFORMATION
  Report Type: 
  Country: None (occurrence: None)
  Receive Date: 20100628
  Receipt Date: 20100617
  Transmission Date: 20101027
  Serious: Yes (Other)
  Sender: FDA-Public Use
  Company Number: US-ROCHE-711309

PATIENT
  Sex: Male

DRUGS (2)
  1. XELODA [Suspect]
     Indication: COLORECTAL CANCER
     Route: 048
  2. XELODA [Suspect]
     Dosage: INDICATION: METASTATIC COLORECTAL CANCER,
     Route: 048

REACTIONS (8)
  - ASTHENIA [None]
  - BLOOD TESTOSTERONE DECREASED [None]
  - DECREASED APPETITE [None]
  - DYSPEPSIA [None]
  - GASTRIC PERFORATION [None]
  - MALIGNANT NEOPLASM PROGRESSION [None]
  - SUICIDAL IDEATION [None]
  - VITAMIN B12 DEFICIENCY [None]
